FAERS Safety Report 20425865 (Version 1)
Quarter: 2022Q1

REPORT INFORMATION
  Report Type: Report from Study
  Country: US (occurrence: US)
  Receive Date: 20220204
  Receipt Date: 20220204
  Transmission Date: 20220423
  Serious: No
  Sender: FDA-Public Use
  Company Number: US-EXELIXIS-CABO-21040407

PATIENT
  Age: 52 Year
  Sex: Female

DRUGS (4)
  1. CABOMETYX [Suspect]
     Active Substance: CABOZANTINIB S-MALATE
     Indication: Renal cancer
     Dosage: 40 MG, QD
     Route: 048
     Dates: start: 20210309
  2. SYNTHROID [Concomitant]
     Active Substance: LEVOTHYROXINE SODIUM
  3. CEPHALEXIN [Concomitant]
     Active Substance: CEPHALEXIN
  4. Triamcinolon [Concomitant]

REACTIONS (5)
  - Psoriasis [Unknown]
  - Tongue discomfort [Unknown]
  - Oesophageal pain [Unknown]
  - Oropharyngeal discomfort [Unknown]
  - Alopecia [Unknown]

NARRATIVE: CASE EVENT DATE: 20210401
